FAERS Safety Report 20607740 (Version 1)
Quarter: 2022Q1

REPORT INFORMATION
  Report Type: Other
  Country: US (occurrence: None)
  Receive Date: 20220317
  Receipt Date: 20220317
  Transmission Date: 20220423
  Serious: No
  Sender: FDA-Public Use
  Company Number: US-ROCHE-3051368

PATIENT
  Age: 57 Year
  Sex: Female
  Weight: 61.290 kg

DRUGS (2)
  1. OCREVUS [Suspect]
     Active Substance: OCRELIZUMAB
     Indication: Relapsing multiple sclerosis
     Dosage: DATE OF PREVIOUS INFUSION: 19/NOV/2020, LAST DATE OF TREATMENT: 25/MAY/2021, 25/JUN/2021
     Route: 042
     Dates: start: 2017
  2. AMPYRA [Concomitant]
     Active Substance: DALFAMPRIDINE
     Route: 048
     Dates: start: 202011

REACTIONS (1)
  - COVID-19 [Recovered/Resolved]

NARRATIVE: CASE EVENT DATE: 20220218
